FAERS Safety Report 15519748 (Version 1)
Quarter: 2018Q4

REPORT INFORMATION
  Report Type: Report from Study
  Country: US (occurrence: US)
  Receive Date: 20181017
  Receipt Date: 20181017
  Transmission Date: 20190205
  Serious: Yes (Other)
  Sender: FDA-Public Use
  Company Number: US-ALLERGAN-1849419US

PATIENT
  Age: 45 Year
  Sex: Female

DRUGS (1)
  1. BOTULINUM TOXIN TYPE A - GENERAL (9060X) [Suspect]
     Active Substance: BOTULINUM TOXIN TYPE A
     Indication: MUSCLE SPASMS
     Dosage: UNK, SINGLE
     Route: 030

REACTIONS (2)
  - Condition aggravated [Unknown]
  - Off label use [Unknown]
